FAERS Safety Report 24594399 (Version 1)
Quarter: 2024Q4

REPORT INFORMATION
  Report Type: Spontaneous
  Country: JP (occurrence: JP)
  Receive Date: 20241108
  Receipt Date: 20241108
  Transmission Date: 20250114
  Serious: Yes (Other)
  Sender: MERCK
  Company Number: JP-MSD-2411JPN000445JAA

PATIENT
  Age: 43 Year
  Sex: Female

DRUGS (5)
  1. KEYTRUDA [Suspect]
     Active Substance: PEMBROLIZUMAB
     Indication: Uterine cancer
     Dosage: 200 MILLIGRAM, Q3W
     Route: 065
  2. KEYTRUDA [Suspect]
     Active Substance: PEMBROLIZUMAB
     Dosage: UNK, Q3W
     Route: 065
  3. LENVATINIB MESYLATE [Suspect]
     Active Substance: LENVATINIB MESYLATE
     Indication: Uterine cancer
     Dosage: 20 MILLIGRAM
     Route: 065
  4. LENVATINIB MESYLATE [Suspect]
     Active Substance: LENVATINIB MESYLATE
     Dosage: 14 MILLIGRAM
     Route: 065
  5. LENVATINIB MESYLATE [Suspect]
     Active Substance: LENVATINIB MESYLATE
     Dosage: 10 MILLIGRAM
     Route: 065

REACTIONS (11)
  - Cholecystitis acute [Unknown]
  - Hepatitis [Unknown]
  - Faeces pale [Unknown]
  - Eustachian tube patulous [Unknown]
  - Nasal mucosal hypertrophy [Unknown]
  - Weight decreased [Unknown]
  - Palmar-plantar erythrodysaesthesia syndrome [Unknown]
  - Decreased appetite [Unknown]
  - Dysphonia [Unknown]
  - Malaise [Unknown]
  - Headache [Unknown]
